APPROVED DRUG PRODUCT: OXYCODONE AND ACETAMINOPHEN
Active Ingredient: ACETAMINOPHEN; OXYCODONE HYDROCHLORIDE
Strength: 325MG/5ML;5MG/5ML
Dosage Form/Route: SOLUTION;ORAL
Application: A211499 | Product #001
Applicant: ABHAI LLC
Approved: Dec 31, 2018 | RLD: No | RS: Yes | Type: RX